FAERS Safety Report 10571025 (Version 1)
Quarter: 2014Q4

REPORT INFORMATION
  Report Type: Spontaneous
  Country: US (occurrence: US)
  Receive Date: 20141107
  Receipt Date: 20141107
  Transmission Date: 20150529
  Serious: Yes (Other)
  Sender: FDA-Public Use
  Company Number: US-SUCAMPO AG-SPI201400795

PATIENT
  Sex: Female
  Weight: 77 kg

DRUGS (8)
  1. SYNTHROID [Concomitant]
     Active Substance: LEVOTHYROXINE SODIUM
     Dosage: UNK
     Dates: start: 2004
  2. UNKNOWN [Concomitant]
     Active Substance: UNSPECIFIED INGREDIENT
     Dosage: UNK
     Dates: start: 2004
  3. AMITIZA [Suspect]
     Active Substance: LUBIPROSTONE
     Dosage: 24 MCG, QD
     Route: 048
     Dates: start: 201407, end: 201409
  4. CARBATROL [Concomitant]
     Active Substance: CARBAMAZEPINE
     Dosage: UNK
     Dates: start: 2004
  5. UNKNOWN [Concomitant]
     Active Substance: UNSPECIFIED INGREDIENT
     Dosage: UNK
     Dates: start: 2004
  6. AMITIZA [Suspect]
     Active Substance: LUBIPROSTONE
     Indication: GASTROINTESTINAL DISORDER
     Dosage: 24 MCG, BID
     Route: 048
     Dates: start: 201407, end: 201407
  7. UNKNOWN [Concomitant]
     Active Substance: UNSPECIFIED INGREDIENT
     Dosage: UNK
     Dates: start: 2004
  8. UNKNOWN [Concomitant]
     Active Substance: UNSPECIFIED INGREDIENT
     Dosage: UNK
     Dates: start: 2004

REACTIONS (5)
  - Off label use [Unknown]
  - Seizure [Recovered/Resolved]
  - Dehydration [Not Recovered/Not Resolved]
  - Dyspepsia [Not Recovered/Not Resolved]
  - Faecal incontinence [Not Recovered/Not Resolved]

NARRATIVE: CASE EVENT DATE: 2014
